FAERS Safety Report 12822571 (Version 4)
Quarter: 2016Q4

REPORT INFORMATION
  Report Type: Spontaneous
  Country: US (occurrence: US)
  Receive Date: 20161007
  Receipt Date: 20161214
  Transmission Date: 20170207
  Serious: Yes (Other)
  Sender: FDA-Public Use
  Company Number: US-PFIZER INC-2016467109

PATIENT
  Age: 51 Year
  Sex: Female
  Weight: 61.68 kg

DRUGS (3)
  1. LYRICA [Suspect]
     Active Substance: PREGABALIN
     Indication: PAIN
  2. LYRICA [Suspect]
     Active Substance: PREGABALIN
     Indication: NEUROPATHY PERIPHERAL
     Dosage: 150 MG, 2X/DAY
  3. LYRICA [Suspect]
     Active Substance: PREGABALIN
     Indication: SEIZURE
     Dosage: 75 MG, 2X/DAY
     Dates: start: 2015

REACTIONS (4)
  - Blindness [Unknown]
  - Incorrect dose administered [Unknown]
  - Pain [Unknown]
  - Feeling abnormal [Unknown]
